FAERS Safety Report 5090848-5 (Version None)
Quarter: 2006Q3

REPORT INFORMATION
  Report Type: 
  Country: None (occurrence: None)
  Receive Date: 20060823
  Receipt Date: 20060809
  Transmission Date: 20061208
  Serious: Yes (Hospitalization)
  Sender: FDA-Public Use
  Company Number: PHBS2006CN11936

PATIENT
  Age: 74 Year
  Sex: Male

DRUGS (2)
  1. LAMISIL [Suspect]
     Indication: NAIL TINEA
     Dosage: 250 MG, QD, ORAL
     Route: 048
     Dates: start: 20051102, end: 20060401
  2. LAMISIL [Suspect]
     Indication: NAIL TINEA
     Dosage: TOPICAL
     Route: 061
     Dates: start: 20041102, end: 20060401

REACTIONS (2)
  - HEPATIC CIRRHOSIS [None]
  - PLATELET COUNT DECREASED [None]
